FAERS Safety Report 10007623 (Version 1)
Quarter: 2014Q1

REPORT INFORMATION
  Report Type: Spontaneous
  Country: US (occurrence: US)
  Receive Date: 20140313
  Receipt Date: 20140313
  Transmission Date: 20141002
  Serious: No
  Sender: FDA-Public Use
  Company Number: US-BAYER-2014-038353

PATIENT
  Age: 80 Year
  Sex: Female
  Weight: 45.35 kg

DRUGS (3)
  1. ALEVE GELCAPS [Suspect]
     Dosage: 1 DF, QD WITH FOOD
     Route: 048
  2. VITAMIN D [Concomitant]
  3. VITAMIN B12 [Concomitant]

REACTIONS (1)
  - Drug ineffective [None]
